FAERS Safety Report 6418691-2 (Version None)
Quarter: 2009Q4

REPORT INFORMATION
  Report Type: 
  Country: None (occurrence: None)
  Receive Date: 20091026
  Receipt Date: 20091013
  Transmission Date: 20100525
  Serious: Yes (Disabling)
  Sender: FDA-Public Use
  Company Number: ADR39492009

PATIENT
  Sex: Female

DRUGS (6)
  1. SIMVASTATIN [Suspect]
     Indication: DIABETES MELLITUS
     Dosage: ORAL
     Route: 048
     Dates: start: 20040101
  2. ATORVASTATIN [Concomitant]
  3. AMLODIPINE [Concomitant]
  4. BENDROFLUMETHIAZIDE [Concomitant]
  5. INSULIN [Concomitant]
  6. LISINOPRIL [Concomitant]

REACTIONS (5)
  - ARTHRALGIA [None]
  - ASTHENIA [None]
  - FATIGUE [None]
  - MUSCULAR WEAKNESS [None]
  - VULVOVAGINAL DRYNESS [None]
